FAERS Safety Report 18686943 (Version 2)
Quarter: 2021Q1

REPORT INFORMATION
  Report Type: Report from Study
  Country: US (occurrence: US)
  Receive Date: 20201230
  Receipt Date: 20210218
  Transmission Date: 20210419
  Serious: Yes (Death, Other)
  Sender: FDA-Public Use
  Company Number: US-JNJFOC-20201253500

PATIENT
  Sex: Female

DRUGS (1)
  1. XARELTO [Suspect]
     Active Substance: RIVAROXABAN
     Indication: ANTICOAGULANT THERAPY
     Route: 048
     Dates: start: 20201118

REACTIONS (4)
  - Muscle spasms [Unknown]
  - Cardiac flutter [Not Recovered/Not Resolved]
  - Neoplasm malignant [Fatal]
  - Hypertension [Not Recovered/Not Resolved]
